FAERS Safety Report 9418023 (Version 1)
Quarter: 2013Q3

REPORT INFORMATION
  Report Type: Spontaneous
  Country: US (occurrence: US)
  Receive Date: 20130724
  Receipt Date: 20130724
  Transmission Date: 20140515
  Serious: No
  Sender: FDA-Public Use
  Company Number: US-BAUSCH-BL-2012-000203

PATIENT
  Age: 58 Year
  Sex: Female

DRUGS (8)
  1. OPCON-A [Suspect]
     Indication: EYE PRURITUS
     Dosage: 1 DROP IN EYE(S), AS NEEDED
     Route: 047
     Dates: start: 20120720
  2. LISINOPRIL [Concomitant]
  3. ARIPIPRAZOLE [Concomitant]
  4. POTASSIUM [Concomitant]
  5. VENLAFAXINE HYDROCHLORIDE [Concomitant]
  6. MIRTAZAPINE [Concomitant]
  7. LEVOTHYROXINE [Concomitant]
  8. METFORMIN [Concomitant]

REACTIONS (1)
  - Instillation site pain [Recovered/Resolved]
